FAERS Safety Report 15794634 (Version 1)
Quarter: 2018Q4

REPORT INFORMATION
  Report Type: Spontaneous
  Country: US (occurrence: US)
  Receive Date: 20181213
  Receipt Date: 20181213
  Transmission Date: 20190205
  Serious: Yes (Death)
  Sender: FDA-Public Use
  Company Number: None

PATIENT
  Age: 66 Year

DRUGS (2)
  1. TACROLIMUS. [Suspect]
     Active Substance: TACROLIMUS
  2. ENTECAVIR 0.5MG TAB (X30) [Suspect]
     Active Substance: ENTECAVIR
     Indication: LIVER TRANSPLANT
     Dates: start: 201702, end: 201812

REACTIONS (1)
  - Death [None]

NARRATIVE: CASE EVENT DATE: 20181204
